FAERS Safety Report 19850296 (Version 1)
Quarter: 2021Q3

REPORT INFORMATION
  Report Type: Spontaneous
  Country: NL (occurrence: NL)
  Receive Date: 20210918
  Receipt Date: 20210918
  Transmission Date: 20211014
  Serious: Yes (Other)
  Sender: FDA-Public Use
  Company Number: NL-AMGEN-NLDSP2021140679

PATIENT
  Age: 57 Year
  Sex: Male

DRUGS (3)
  1. XGEVA [Suspect]
     Active Substance: DENOSUMAB
     Indication: METASTASES TO BONE
     Dosage: 120 MILLIGRAM, Q3MO
     Route: 065
  2. XGEVA [Suspect]
     Active Substance: DENOSUMAB
     Indication: PROPHYLAXIS
  3. LANREOTIDE [Concomitant]
     Active Substance: LANREOTIDE
     Dosage: 120 MILLIGRAM, Q4WK
     Route: 065

REACTIONS (5)
  - Pathological fracture [Unknown]
  - Metastases to bone [Recovering/Resolving]
  - Pancytopenia [Not Recovered/Not Resolved]
  - Disease progression [Recovering/Resolving]
  - Off label use [Unknown]
